FAERS Safety Report 6608639-X (Version None)
Quarter: 2010Q1

REPORT INFORMATION
  Report Type: 
  Country: None (occurrence: None)
  Receive Date: 20100301
  Receipt Date: 20100219
  Transmission Date: 20100710
  Serious: Yes (Hospitalization)
  Sender: FDA-Public Use
  Company Number: IT-SANOFI-AVENTIS-2010SA010283

PATIENT
  Age: 32 Year
  Sex: Male

DRUGS (1)
  1. ZOLPIDEM [Suspect]
     Indication: AGITATION
     Route: 048
     Dates: start: 20080101, end: 20080101

REACTIONS (12)
  - AGITATION [None]
  - ANXIETY [None]
  - CONFUSIONAL STATE [None]
  - DEPRESSED MOOD [None]
  - DISORIENTATION [None]
  - FEELING ABNORMAL [None]
  - FEELINGS OF WORTHLESSNESS [None]
  - HALLUCINATION, AUDITORY [None]
  - INSOMNIA [None]
  - INTENTIONAL OVERDOSE [None]
  - INTENTIONAL SELF-INJURY [None]
  - PSYCHOTIC DISORDER [None]
